FAERS Safety Report 8117260-6 (Version None)
Quarter: 2012Q1

REPORT INFORMATION
  Report Type: 
  Country: None (occurrence: None)
  Receive Date: 20120206
  Receipt Date: 20120130
  Transmission Date: 20120608
  Serious: Yes (Hospitalization, Other)
  Sender: FDA-Public Use
  Company Number: US-MERCK-1103USA00993

PATIENT
  Age: 67 Year
  Sex: Female
  Weight: 78 kg

DRUGS (10)
  1. GLUCOSAMINE [Concomitant]
     Route: 048
     Dates: start: 19800101
  2. AMBIEN [Concomitant]
     Indication: INSOMNIA
     Route: 048
     Dates: start: 19950101
  3. FOSAMAX [Suspect]
     Indication: OSTEOPENIA
     Route: 048
     Dates: start: 19991201, end: 20080201
  4. VITAMINS (UNSPECIFIED) [Concomitant]
     Route: 048
     Dates: start: 19700101
  5. ALENDRONATE SODIUM [Suspect]
     Indication: OSTEOPENIA
     Route: 048
  6. CALCIUM (UNSPECIFIED) AND VITAMIN D (UNSPECIFIED) [Concomitant]
     Dosage: 500-1200MG/2000 IU
     Route: 048
     Dates: start: 19800101
  7. OMEGA-3 MARINE TRIGLYCERIDES [Concomitant]
     Route: 048
     Dates: start: 19800101
  8. PANTOTHENIC ACID [Concomitant]
     Route: 048
     Dates: start: 19800101
  9. FOSAMAX [Suspect]
     Route: 048
     Dates: start: 20080301, end: 20100201
  10. CYANOCOBALAMIN AND FOLIC ACID AND PYRIDOXINE HYDROCHLORIDE [Concomitant]
     Route: 048

REACTIONS (19)
  - FOOT FRACTURE [None]
  - TACHYCARDIA [None]
  - FOOT DEFORMITY [None]
  - TOOTH DISORDER [None]
  - FEMUR FRACTURE [None]
  - ANKLE DEFORMITY [None]
  - RASH [None]
  - VITAMIN D DEFICIENCY [None]
  - FOOD ALLERGY [None]
  - OXYGEN SATURATION DECREASED [None]
  - FIBROCYSTIC BREAST DISEASE [None]
  - INTERVERTEBRAL DISC DISORDER [None]
  - GLUCOSE TOLERANCE IMPAIRED [None]
  - HOT FLUSH [None]
  - DRUG HYPERSENSITIVITY [None]
  - FALL [None]
  - SYNOVIAL CYST [None]
  - GLYCOSYLATED HAEMOGLOBIN INCREASED [None]
  - DEHYDRATION [None]
